FAERS Safety Report 15026901 (Version 3)
Quarter: 2018Q3

REPORT INFORMATION
  Report Type: Report from Study
  Country: US (occurrence: US)
  Receive Date: 20180619
  Receipt Date: 20180719
  Transmission Date: 20181010
  Serious: No
  Sender: FDA-Public Use
  Company Number: US-AMGEN-USASL2018080759

PATIENT
  Age: 34 Year
  Sex: Male

DRUGS (3)
  1. PREDNISONE. [Concomitant]
     Active Substance: PREDNISONE
     Indication: ANKYLOSING SPONDYLITIS
     Dosage: 20 MG, UNK
  2. ENBREL [Suspect]
     Active Substance: ETANERCEPT
     Dosage: 50 MG, QWK
     Route: 065
     Dates: start: 2018
  3. ENBREL [Suspect]
     Active Substance: ETANERCEPT
     Indication: ANKYLOSING SPONDYLITIS
     Dosage: 50 MG, QWK
     Route: 065
     Dates: start: 201805, end: 201806

REACTIONS (13)
  - Musculoskeletal pain [Not Recovered/Not Resolved]
  - Abdominal discomfort [Unknown]
  - Tonsillitis [Unknown]
  - Pyrexia [Recovered/Resolved]
  - Pain in extremity [Unknown]
  - Muscle spasms [Recovered/Resolved]
  - Back pain [Unknown]
  - Pain [Recovered/Resolved]
  - Paraesthesia [Unknown]
  - Muscle twitching [Not Recovered/Not Resolved]
  - Arthralgia [Unknown]
  - Breast pain [Unknown]
  - Swelling [Unknown]

NARRATIVE: CASE EVENT DATE: 2018
